FAERS Safety Report 17039937 (Version 1)
Quarter: 2019Q4

REPORT INFORMATION
  Report Type: Spontaneous
  Country: GB (occurrence: GB)
  Receive Date: 20191116
  Receipt Date: 20191116
  Transmission Date: 20200122
  Serious: Yes (Hospitalization)
  Sender: FDA-Public Use
  Company Number: GB-ACCORD-161117

PATIENT
  Age: 79 Year
  Sex: Male

DRUGS (14)
  1. PIOGLITAZONE/PIOGLITAZONE HYDROCHLORIDE [Suspect]
     Active Substance: PIOGLITAZONE HYDROCHLORIDE
     Indication: PRODUCT USED FOR UNKNOWN INDICATION
     Dosage: MORNING
     Route: 048
     Dates: end: 20180713
  2. CODEINE PHOSPHATE/PARACETAMOL [Concomitant]
     Dosage: 30MG/500MG
  3. GABAPENTIN. [Concomitant]
     Active Substance: GABAPENTIN
  4. ACETYLSALICYLIC ACID [Concomitant]
     Active Substance: ASPIRIN
  5. LANSOPRAZOLE. [Concomitant]
     Active Substance: LANSOPRAZOLE
  6. GLICLAZIDE [Concomitant]
     Active Substance: GLICLAZIDE
  7. IRBESARTAN. [Suspect]
     Active Substance: IRBESARTAN
     Indication: PRODUCT USED FOR UNKNOWN INDICATION
     Dosage: MORNING
     Route: 048
     Dates: end: 20180712
  8. METFORMIN [Suspect]
     Active Substance: METFORMIN HYDROCHLORIDE
     Indication: PRODUCT USED FOR UNKNOWN INDICATION
     Dates: end: 20180712
  9. SIMVASTATIN. [Concomitant]
     Active Substance: SIMVASTATIN
  10. DAPAGLIFLOZIN. [Concomitant]
     Active Substance: DAPAGLIFLOZIN
  11. ADCAL-D3 [Concomitant]
     Active Substance: CALCIUM CARBONATE\CHOLECALCIFEROL
     Dosage: 750MG/200UNIT
  12. LINAGLIPTIN [Concomitant]
     Active Substance: LINAGLIPTIN
  13. IRON [Concomitant]
     Active Substance: IRON
  14. ALENDRONATE SODIUM/ALENDRONIC ACID [Concomitant]

REACTIONS (5)
  - Acute kidney injury [Recovered/Resolved]
  - Confusional state [Unknown]
  - Infection [Unknown]
  - Oedema peripheral [Recovering/Resolving]
  - Hyperlactacidaemia [Recovered/Resolved]

NARRATIVE: CASE EVENT DATE: 20180712
